FAERS Safety Report 5712336-2 (Version None)
Quarter: 2008Q2

REPORT INFORMATION
  Report Type: 
  Country: None (occurrence: None)
  Receive Date: 20080421
  Receipt Date: 20080421
  Transmission Date: 20081010
  Serious: Yes (Other)
  Sender: FDA-Public Use
  Company Number: None

PATIENT
  Age: 27 Year
  Sex: Female
  Weight: 73.4827 kg

DRUGS (2)
  1. NASONEX [Suspect]
     Indication: HEADACHE
     Dosage: I SPRAY 1 PER DAY NASAL
     Route: 045
     Dates: start: 20080321, end: 20080419
  2. NASONEX [Suspect]
     Indication: ILL-DEFINED DISORDER
     Dosage: I SPRAY 1 PER DAY NASAL
     Route: 045
     Dates: start: 20080321, end: 20080419

REACTIONS (3)
  - DEPRESSION [None]
  - ILL-DEFINED DISORDER [None]
  - MOOD SWINGS [None]
